FAERS Safety Report 23999995 (Version 1)
Quarter: 2024Q2

REPORT INFORMATION
  Report Type: Spontaneous
  Country: AU (occurrence: AU)
  Receive Date: 20240621
  Receipt Date: 20240621
  Transmission Date: 20240716
  Serious: Yes (Other)
  Sender: FDA-Public Use
  Company Number: AU-MYLANLABS-2024M1055920

PATIENT
  Sex: Male

DRUGS (5)
  1. METHYLPHENIDATE [Suspect]
     Active Substance: METHYLPHENIDATE
     Indication: Bipolar I disorder
     Dosage: UNK
     Route: 065
     Dates: start: 202001, end: 202004
  2. AMITRIPTYLINE [Suspect]
     Active Substance: AMITRIPTYLINE
     Indication: Bipolar I disorder
     Dosage: 100 MILLIGRAM, QD
     Route: 065
     Dates: start: 2019
  3. AMITRIPTYLINE [Suspect]
     Active Substance: AMITRIPTYLINE
     Dosage: UNK, ESCALATING AMITRIPTYLINE DOSES
     Route: 065
     Dates: end: 2020
  4. AMITRIPTYLINE [Suspect]
     Active Substance: AMITRIPTYLINE
     Dosage: UNK, DOSE REDUCED
     Route: 065
  5. LITHIUM [Concomitant]
     Active Substance: LITHIUM
     Indication: Bipolar I disorder
     Dosage: UNK
     Route: 065
     Dates: start: 2019

REACTIONS (3)
  - Drug ineffective [Unknown]
  - Hypomania [Recovered/Resolved]
  - Off label use [Unknown]

NARRATIVE: CASE EVENT DATE: 20200401
